FAERS Safety Report 9132250 (Version 1)
Quarter: 2013Q1

REPORT INFORMATION
  Report Type: Spontaneous
  Country: US (occurrence: US)
  Receive Date: 20130301
  Receipt Date: 20130301
  Transmission Date: 20140127
  Serious: No
  Sender: FDA-Public Use
  Company Number: US-PFIZER INC-2013073107

PATIENT
  Sex: Male

DRUGS (1)
  1. LYRICA [Suspect]
     Indication: DIABETIC NEUROPATHY
     Dosage: UNK, ONE IN THE MORNING AND IN THE EVENING FOR 7 DAYS
     Dates: start: 201302

REACTIONS (1)
  - Drug ineffective [Unknown]
